FAERS Safety Report 19580140 (Version 1)
Quarter: 2021Q3

REPORT INFORMATION
  Report Type: Spontaneous
  Country: CN (occurrence: CN)
  Receive Date: 20210719
  Receipt Date: 20210719
  Transmission Date: 20211014
  Serious: Yes (Hospitalization)
  Sender: FDA-Public Use
  Company Number: CN-ASTRAZENECA-2021A617374

PATIENT
  Age: 54 Year
  Sex: Male

DRUGS (3)
  1. NEXIUM [Suspect]
     Active Substance: ESOMEPRAZOLE MAGNESIUM
     Indication: ABDOMINAL DISCOMFORT
     Dosage: ONE TABLET BEFORE BREAKFAST, ONE TABLET BEFORE DINNER
     Route: 048
  2. NEXIUM [Suspect]
     Active Substance: ESOMEPRAZOLE MAGNESIUM
     Indication: ABDOMINAL DISCOMFORT
     Dosage: ONE TABLET BEFORE BREAKFAST, ONE TABLET BEFORE DINNER
     Route: 048
  3. CITRATE [Concomitant]
     Active Substance: CITRIC ACID MONOHYDRATE
     Indication: GASTRIC DISORDER

REACTIONS (1)
  - Ill-defined disorder [Not Recovered/Not Resolved]
